FAERS Safety Report 9191560 (Version 1)
Quarter: 2013Q1

REPORT INFORMATION
  Report Type: Spontaneous
  Country: US (occurrence: US)
  Receive Date: 20130326
  Receipt Date: 20130326
  Transmission Date: 20140127
  Serious: No
  Sender: FDA-Public Use
  Company Number: US-ASTRAZENECA-2013SE17045

PATIENT
  Age: 73 Year
  Sex: Female

DRUGS (1)
  1. SYMBICORT [Suspect]
     Dosage: UNKNOWN DOSE WITH UNKNOWN FREQUENCY
     Route: 055
     Dates: start: 201301

REACTIONS (3)
  - Respiratory tract infection [Unknown]
  - Atrial fibrillation [Unknown]
  - Cough [Unknown]
